FAERS Safety Report 15237999 (Version 5)
Quarter: 2019Q2

REPORT INFORMATION
  Report Type: Report from Study
  Country: None (occurrence: CA)
  Receive Date: 20180803
  Receipt Date: 20190426
  Transmission Date: 20190711
  Serious: Yes (Death, Hospitalization, Other)
  Sender: FDA-Public Use
  Company Number: CA-ABBVIE-18S-028-2436206-00

PATIENT
  Age: 71 Year
  Sex: Male
  Weight: 93.07 kg

DRUGS (4)
  1. LUPRON DEPOT [Suspect]
     Active Substance: LEUPROLIDE ACETATE
     Route: 050
  2. LUPRON DEPOT [Suspect]
     Active Substance: LEUPROLIDE ACETATE
     Route: 050
  3. LUPRON DEPOT [Suspect]
     Active Substance: LEUPROLIDE ACETATE
     Indication: PROSTATE CANCER
     Route: 030
     Dates: start: 20141216
  4. LUPRON DEPOT [Suspect]
     Active Substance: LEUPROLIDE ACETATE
     Route: 030

REACTIONS (13)
  - Speech disorder [Unknown]
  - Urinary tract infection [Unknown]
  - Death [Fatal]
  - General physical health deterioration [Unknown]
  - Oesophageal carcinoma [Not Recovered/Not Resolved]
  - Condition aggravated [Unknown]
  - Back pain [Unknown]
  - Upper limb fracture [Unknown]
  - Urinary retention [Unknown]
  - General physical health deterioration [Unknown]
  - Back pain [Recovered/Resolved]
  - Metastases to liver [Unknown]
  - Fall [Unknown]

NARRATIVE: CASE EVENT DATE: 201807
